FAERS Safety Report 25227124 (Version 1)
Quarter: 2025Q2

REPORT INFORMATION
  Report Type: Spontaneous
  Country: JP (occurrence: JP)
  Receive Date: 20250422
  Receipt Date: 20250422
  Transmission Date: 20250716
  Serious: Yes (Other)
  Sender: ABBVIE
  Company Number: JP-ABBVIE-6188761

PATIENT
  Age: 40 Year
  Sex: Male

DRUGS (2)
  1. RINVOQ [Suspect]
     Active Substance: UPADACITINIB
     Indication: Crohn^s disease
     Route: 048
     Dates: start: 20241211
  2. RINVOQ [Suspect]
     Active Substance: UPADACITINIB
     Indication: Crohn^s disease
     Route: 048
     Dates: start: 20240611, end: 20241031

REACTIONS (18)
  - Ileectomy [Unknown]
  - Enteritis infectious [Recovered/Resolved]
  - Enteritis infectious [Recovered/Resolved]
  - Colectomy [Unknown]
  - Nausea [Unknown]
  - Nausea [Recovered/Resolved]
  - Malaise [Recovering/Resolving]
  - Malaise [Recovered/Resolved]
  - Anaemia [Recovering/Resolving]
  - Ileal stenosis [Unknown]
  - Gastrointestinal inflammation [Unknown]
  - Colitis [Unknown]
  - Enterocolitis [Unknown]
  - Diarrhoea [Unknown]
  - Pyrexia [Recovered/Resolved]
  - Body fat disorder [Unknown]
  - Pyrexia [Unknown]
  - Haemoglobin decreased [Unknown]

NARRATIVE: CASE EVENT DATE: 20240101
